FAERS Safety Report 18560053 (Version 2)
Quarter: 2021Q3

REPORT INFORMATION
  Report Type: Spontaneous
  Country: US (occurrence: US)
  Receive Date: 20201130
  Receipt Date: 20210712
  Transmission Date: 20211014
  Serious: Yes (Other)
  Sender: FDA-Public Use
  Company Number: US-MYLANLABS-2020M1097066

PATIENT
  Age: 70 Year
  Sex: Male
  Weight: 111.11 kg

DRUGS (7)
  1. ATENOLOL. [Concomitant]
     Active Substance: ATENOLOL
     Indication: DIURETIC THERAPY
     Dosage: 50 MILLIGRAM, QD
     Dates: start: 20091215
  2. VALSARTAN AND HYDROCHLOROTHIAZIDE TABLETS, USP [Suspect]
     Active Substance: HYDROCHLOROTHIAZIDE\VALSARTAN
     Dosage: UNK
     Dates: start: 20140331, end: 20150102
  3. MELATONIN [Concomitant]
     Active Substance: MELATONIN
     Indication: SLEEP APNOEA SYNDROME
     Dosage: 3 MILLIGRAM, PM
  4. LIPITOR [Concomitant]
     Active Substance: ATORVASTATIN CALCIUM
     Indication: HYPERLIPIDAEMIA
     Dosage: 20 MILLIGRAM
  5. VITAMIN E                          /00110501/ [Concomitant]
     Active Substance: TOCOPHEROL
     Indication: ANTIINFLAMMATORY THERAPY
     Dosage: 400 UNIT, QD
  6. VALSARTAN AND HYDROCHLOROTHIAZIDE TABLETS, USP [Suspect]
     Active Substance: HYDROCHLOROTHIAZIDE\VALSARTAN
     Indication: HYPERTENSION
     Dosage: UNK
     Dates: start: 20131002, end: 20131230
  7. ASPIRIN                            /00002701/ [Concomitant]
     Active Substance: ASPIRIN
     Indication: ANTIINFLAMMATORY THERAPY
     Dosage: 81 MILLIGRAM, QD

REACTIONS (1)
  - Colorectal cancer stage II [Unknown]

NARRATIVE: CASE EVENT DATE: 20190904
